FAERS Safety Report 7739608-4 (Version None)
Quarter: 2011Q3

REPORT INFORMATION
  Report Type: 
  Country: None (occurrence: None)
  Receive Date: 20110909
  Receipt Date: 20110905
  Transmission Date: 20111222
  Serious: Yes (Death, Hospitalization, Other)
  Sender: FDA-Public Use
  Company Number: GB-PFIZER INC-2011207593

PATIENT
  Age: 68 Year
  Sex: Male

DRUGS (6)
  1. PERINDOPRIL [Concomitant]
  2. WARFARIN [Concomitant]
  3. SULFASALAZINE [Suspect]
     Indication: RHEUMATOID ARTHRITIS
     Dosage: 2 G, 1X/DAY
     Route: 048
     Dates: start: 20100816, end: 20101105
  4. OMEPRAZOLE [Concomitant]
  5. ATENOLOL [Concomitant]
  6. SIMVASTATIN [Concomitant]

REACTIONS (4)
  - ALVEOLITIS FIBROSING [None]
  - HYPOXIA [None]
  - PNEUMONITIS [None]
  - DYSPNOEA [None]
